FAERS Safety Report 10206064 (Version 1)
Quarter: 2014Q2

REPORT INFORMATION
  Report Type: Spontaneous
  Country: US (occurrence: US)
  Receive Date: 20140530
  Receipt Date: 20140530
  Transmission Date: 20141212
  Serious: No
  Sender: FDA-Public Use
  Company Number: US-PFIZER INC-2014146374

PATIENT
  Age: 72 Year
  Sex: Male
  Weight: 68.03 kg

DRUGS (6)
  1. GABAPENTIN [Suspect]
     Indication: DIABETIC NEUROPATHY
     Dosage: ONE 300 MG CAPSULE IN THE MORNING, ONE 300 MG CAPSULE AT NOON AND 600 MG  AT BEDTIME
     Dates: start: 2012
  2. AMITRIPTYLINE [Concomitant]
     Indication: DEPRESSION
     Dosage: UNK
  3. GLIMEPIRIDE [Concomitant]
     Dosage: 1 MG, DAILY
  4. ATENOLOL [Concomitant]
     Dosage: 25 MG, DAILY
  5. LEVOTHYROXINE [Concomitant]
     Dosage: 150 UG (ONE TABLET), DAILY
  6. SIMVASTATIN [Concomitant]
     Dosage: 40 MG, DAILY AT BED TIME

REACTIONS (1)
  - Therapeutic response changed [Unknown]
